FAERS Safety Report 16158582 (Version 6)
Quarter: 2021Q4

REPORT INFORMATION
  Report Type: Report from Study
  Country: KR (occurrence: KR)
  Receive Date: 20190404
  Receipt Date: 20211217
  Transmission Date: 20220303
  Serious: Yes (Hospitalization)
  Sender: FDA-Public Use
  Company Number: KR-CELGENE-KOR-20190309804

PATIENT
  Age: 52 Year
  Sex: Male
  Weight: 62 kg

DRUGS (46)
  1. POMALIDOMIDE [Suspect]
     Active Substance: POMALIDOMIDE
     Indication: Plasma cell myeloma
     Dosage: 4 MILLIGRAM
     Route: 048
     Dates: start: 20180109, end: 20180109
  2. POMALIDOMIDE [Suspect]
     Active Substance: POMALIDOMIDE
     Dosage: 4 MILLIGRAM
     Route: 048
     Dates: start: 20190313, end: 20190320
  3. DEXAMETHASONE [Suspect]
     Active Substance: DEXAMETHASONE
     Indication: Plasma cell myeloma
     Dosage: 40 MILLIGRAM
     Route: 048
     Dates: start: 20180109, end: 20180109
  4. DEXAMETHASONE [Suspect]
     Active Substance: DEXAMETHASONE
     Dosage: 40 MILLIGRAM
     Route: 048
     Dates: start: 20190320, end: 20190320
  5. ISATUXIMAB [Suspect]
     Active Substance: ISATUXIMAB
     Indication: Plasma cell myeloma
     Dosage: 10 MILLIGRAM/KILOGRAM
     Route: 042
     Dates: start: 20180109, end: 20180109
  6. ISATUXIMAB [Suspect]
     Active Substance: ISATUXIMAB
     Dosage: 10 MILLIGRAM/KILOGRAM
     Route: 042
     Dates: start: 20190313, end: 20190313
  7. ACETAMINOPHEN [Concomitant]
     Active Substance: ACETAMINOPHEN
     Indication: Prophylaxis
     Route: 048
     Dates: start: 20190102, end: 20190104
  8. ACETAMINOPHEN [Concomitant]
     Active Substance: ACETAMINOPHEN
     Dosage: 650 MILLIGRAM
     Route: 048
     Dates: start: 20190116, end: 20190116
  9. ACETAMINOPHEN [Concomitant]
     Active Substance: ACETAMINOPHEN
     Dosage: 650 MILLIGRAM
     Route: 048
     Dates: start: 20190130, end: 20190130
  10. ACETAMINOPHEN [Concomitant]
     Active Substance: ACETAMINOPHEN
     Dosage: 650 MILLIGRAM
     Route: 048
     Dates: start: 20190213, end: 20190213
  11. ACETAMINOPHEN [Concomitant]
     Active Substance: ACETAMINOPHEN
     Dosage: 650 MILLIGRAM
     Route: 048
     Dates: start: 20190227, end: 20190227
  12. ACETAMINOPHEN [Concomitant]
     Active Substance: ACETAMINOPHEN
     Route: 065
     Dates: start: 20190313, end: 20190313
  13. RANITIDINE [Concomitant]
     Active Substance: RANITIDINE
     Indication: Prophylaxis
     Dosage: 50 MILLIGRAM
     Route: 041
     Dates: start: 20190116, end: 20190116
  14. RANITIDINE [Concomitant]
     Active Substance: RANITIDINE
     Dosage: 50 MILLIGRAM
     Route: 041
     Dates: start: 20190130, end: 20190130
  15. RANITIDINE [Concomitant]
     Active Substance: RANITIDINE
     Dosage: 50 MILLIGRAM
     Route: 041
     Dates: start: 20190213, end: 20190213
  16. RANITIDINE [Concomitant]
     Active Substance: RANITIDINE
     Dosage: 50 MILLIGRAM
     Route: 041
     Dates: start: 20190227, end: 20190227
  17. RANITIDINE [Concomitant]
     Active Substance: RANITIDINE
     Route: 065
     Dates: start: 20190313, end: 20190313
  18. RANITIDINE [Concomitant]
     Active Substance: RANITIDINE
     Route: 065
     Dates: start: 2019, end: 201904
  19. CHLORPHENIRAMINE [Concomitant]
     Active Substance: CHLORPHENIRAMINE
     Indication: Prophylaxis
     Dosage: 4 MILLIGRAM
     Route: 041
     Dates: start: 20190116, end: 20190116
  20. CHLORPHENIRAMINE [Concomitant]
     Active Substance: CHLORPHENIRAMINE
     Dosage: 4 MILLIGRAM
     Route: 041
     Dates: start: 20190130, end: 20190130
  21. CHLORPHENIRAMINE [Concomitant]
     Active Substance: CHLORPHENIRAMINE
     Dosage: 4 MILLIGRAM
     Route: 041
     Dates: start: 20190213, end: 20190213
  22. CHLORPHENIRAMINE [Concomitant]
     Active Substance: CHLORPHENIRAMINE
     Dosage: 4 MILLIGRAM
     Route: 041
     Dates: start: 20190227, end: 20190227
  23. CHLORPHENIRAMINE [Concomitant]
     Active Substance: CHLORPHENIRAMINE
     Route: 065
     Dates: start: 20190313, end: 20190313
  24. ASPIRIN [Concomitant]
     Active Substance: ASPIRIN
     Indication: Product used for unknown indication
     Route: 065
     Dates: start: 20180206
  25. PAMIDRONATE [Concomitant]
     Active Substance: PAMIDRONATE DISODIUM
     Indication: Product used for unknown indication
     Route: 065
     Dates: start: 20180206
  26. URSODIOL [Concomitant]
     Active Substance: URSODIOL
     Indication: Product used for unknown indication
     Route: 048
     Dates: start: 20180509, end: 20190313
  27. DICAMAX [Concomitant]
     Indication: Product used for unknown indication
     Route: 048
     Dates: start: 20180605
  28. MYPOL [Concomitant]
     Indication: Product used for unknown indication
     Route: 048
     Dates: start: 20180620, end: 20190410
  29. PREGABALIN [Concomitant]
     Active Substance: PREGABALIN
     Indication: Product used for unknown indication
     Route: 065
     Dates: start: 20181024
  30. CYMBlALTA [Concomitant]
     Indication: Product used for unknown indication
     Route: 048
     Dates: start: 20181024, end: 20190116
  31. BISMUTH SUBCITRATE\RANITIDINE HYDROCHLORIDE\SUCRALFATE [Concomitant]
     Active Substance: BISMUTH SUBCITRATE\RANITIDINE HYDROCHLORIDE\SUCRALFATE
     Indication: Product used for unknown indication
     Route: 065
     Dates: start: 20190116, end: 20190410
  32. ALMAGATE [Concomitant]
     Active Substance: ALMAGATE
     Indication: Product used for unknown indication
     Route: 065
     Dates: start: 20190116, end: 20190313
  33. LOPERAMIDE [Concomitant]
     Active Substance: LOPERAMIDE
     Indication: Product used for unknown indication
     Route: 065
     Dates: start: 20190227, end: 20190403
  34. SMECTA [Concomitant]
     Active Substance: MONTMORILLONITE
     Indication: Product used for unknown indication
     Route: 065
     Dates: start: 20190227, end: 20190403
  35. OLIVE OIL\SOYBEAN OIL [Concomitant]
     Active Substance: OLIVE OIL\SOYBEAN OIL
     Indication: Prophylaxis
     Route: 065
     Dates: start: 20190102, end: 20190102
  36. LEVOFLOXACIN [Concomitant]
     Active Substance: LEVOFLOXACIN
     Indication: Prophylaxis
     Route: 065
     Dates: start: 20190102, end: 20190102
  37. LEVODROPROPIZINE [Concomitant]
     Active Substance: LEVODROPROPIZINE
     Indication: Product used for unknown indication
     Route: 048
     Dates: start: 20190102, end: 20190104
  38. COUGH SYRUP [Concomitant]
     Active Substance: DEXTROMETHORPHAN HYDROBROMIDE\GUAIFENESIN
     Indication: Product used for unknown indication
     Route: 048
     Dates: start: 20190102, end: 20190104
  39. ACETYLCYSTEINE [Concomitant]
     Active Substance: ACETYLCYSTEINE
     Indication: Product used for unknown indication
     Route: 065
     Dates: start: 20190102, end: 20190109
  40. ZALTOPROFEN [Concomitant]
     Active Substance: ZALTOPROFEN
     Indication: Product used for unknown indication
     Route: 048
     Dates: start: 20190105, end: 20190109
  41. BENPROPERINE [Concomitant]
     Active Substance: BENPROPERINE
     Indication: Product used for unknown indication
     Route: 048
     Dates: start: 20190105, end: 20190109
  42. CEFDITOREN [Concomitant]
     Active Substance: CEFDITOREN
     Indication: Product used for unknown indication
     Route: 048
     Dates: start: 20190105, end: 20190109
  43. PSEUDOEPHEDRINE [Concomitant]
     Active Substance: PSEUDOEPHEDRINE
     Indication: Product used for unknown indication
     Route: 048
     Dates: start: 20190105, end: 20190109
  44. TEPRENONE [Concomitant]
     Active Substance: TEPRENONE
     Indication: Prophylaxis
     Route: 048
     Dates: start: 20190105, end: 20190109
  45. NORSPAN [Concomitant]
     Active Substance: BUPRENORPHINE
     Indication: Product used for unknown indication
     Route: 062
     Dates: start: 20181024, end: 20190116
  46. HERBALS [Concomitant]
     Active Substance: HERBALS
     Indication: Product used for unknown indication
     Route: 065
     Dates: start: 20190313, end: 20200214

REACTIONS (2)
  - Basal ganglia infarction [Recovered/Resolved]
  - Pneumocystis jirovecii pneumonia [Recovered/Resolved]

NARRATIVE: CASE EVENT DATE: 20190314
